FAERS Safety Report 6748183-2 (Version None)
Quarter: 2010Q2

REPORT INFORMATION
  Report Type: 
  Country: None (occurrence: None)
  Receive Date: 20100531
  Receipt Date: 20100524
  Transmission Date: 20101027
  Serious: Yes (Life-Threatening, Hospitalization)
  Sender: FDA-Public Use
  Company Number: PHHY2010DE29556

PATIENT
  Sex: Female
  Weight: 90 kg

DRUGS (23)
  1. ALISKIREN ALI+ [Suspect]
     Indication: HYPERTENSION
     Dosage: 300MG PER DAY
     Route: 048
     Dates: start: 20090304
  2. ACE INHIBITOR NOS [Concomitant]
  3. BETA BLOCKING AGENTS [Concomitant]
  4. CALCIUM CHANNEL BLOCKERS [Concomitant]
  5. DIURETICS [Concomitant]
     Dosage: UNK
  6. ALPHA-ADRENOCEPTOR BLOCKING AGENTS [Concomitant]
  7. NITRATES [Concomitant]
  8. ANTIDEPRESSANTS [Concomitant]
  9. PLATELET AGGREGATION INHIBITORS [Concomitant]
  10. CHOLESTEROL- AND TRIGLYCERIDE REDUCERS [Concomitant]
  11. RAMIPRIL [Concomitant]
     Dosage: 10MG PER DAY
     Route: 048
  12. METOPROLOL TARTRATE [Concomitant]
     Dosage: 200MG/D
     Route: 048
  13. FUROSEMIDE [Concomitant]
     Dosage: 40MG/D
     Route: 048
  14. ASPIRIN [Concomitant]
     Dosage: 100MG/D
     Route: 048
  15. MIRTAZAPINE [Concomitant]
     Dosage: 30MG/D
     Route: 048
  16. CARMEN [Concomitant]
     Dosage: 10MG/D
     Route: 048
     Dates: start: 20090304
  17. EZETIMIBE/SIMVASTATIN [Concomitant]
     Dosage: 10MG/20MG, 1 DF/D
     Route: 048
  18. OXYCODONE [Concomitant]
     Dosage: 240MG/D
     Route: 048
  19. PENTAERYTHRITOL TETRANITRATE [Concomitant]
     Dosage: 100MG/D
     Route: 048
     Dates: start: 20080402
  20. SPIRONOLACTONE [Concomitant]
     Dosage: 50MG/D
     Route: 048
  21. XIPAMIDE [Concomitant]
     Dosage: 40MG/D
     Route: 048
  22. MOXONIDINE [Concomitant]
     Dosage: 0.4MG/D
     Route: 048
  23. RADEDORM [Concomitant]
     Dosage: 5MG/D
     Route: 048

REACTIONS (10)
  - BLOOD CHOLESTEROL INCREASED [None]
  - BLOOD TRIGLYCERIDES INCREASED [None]
  - CEREBRAL ISCHAEMIA [None]
  - CEREBROVASCULAR ACCIDENT [None]
  - HYPERTENSION [None]
  - PULMONARY OEDEMA [None]
  - REHABILITATION THERAPY [None]
  - RENAL FAILURE ACUTE [None]
  - STAPHYLOCOCCAL SEPSIS [None]
  - WITHDRAWAL SYNDROME [None]
